FAERS Safety Report 5588153-3 (Version None)
Quarter: 2008Q1

REPORT INFORMATION
  Report Type: 
  Country: None (occurrence: None)
  Receive Date: 20080109
  Receipt Date: 20080109
  Transmission Date: 20080703
  Serious: Yes (Life-Threatening)
  Sender: FDA-Public Use
  Company Number: None

PATIENT
  Sex: Male
  Weight: 22.6799 kg

DRUGS (1)
  1. MUPIROCIN [Suspect]
     Indication: NASAL DISCOMFORT
     Dosage: SMALL AMT APPLIED IN/OUT NOSE 1X
     Route: 045
     Dates: start: 20071222, end: 20071223

REACTIONS (8)
  - DYSPEPSIA [None]
  - DYSPNOEA [None]
  - FALL [None]
  - FATIGUE [None]
  - FEELING ABNORMAL [None]
  - HEAD INJURY [None]
  - LOSS OF CONSCIOUSNESS [None]
  - THROAT IRRITATION [None]
